FAERS Safety Report 5085024-6 (Version None)
Quarter: 2006Q3

REPORT INFORMATION
  Report Type: 
  Country: None (occurrence: None)
  Receive Date: 20060815
  Receipt Date: 20060731
  Transmission Date: 20061208
  Serious: Yes (Disabling, Other)
  Sender: FDA-Public Use
  Company Number: US200604003781

PATIENT
  Age: 77 Year
  Sex: Female
  Weight: 70.7 kg

DRUGS (8)
  1. FORTEO [Suspect]
     Indication: OSTEOPOROSIS
     Dosage: 20 UG, DAILY (1/D)
     Dates: start: 20050917
  2. FORTEO PEN(FORTEO PEN) [Concomitant]
  3. ASA (ASPIRIN (ACETYLSALICYLIC ACID)) [Concomitant]
  4. SYNTHROID [Concomitant]
  5. ALTACE [Concomitant]
  6. CALAN [Concomitant]
  7. CITRACAL (CALCIUM CITRATE) [Concomitant]
  8. BACTRIM [Concomitant]

REACTIONS (4)
  - BLINDNESS UNILATERAL [None]
  - MACULAR HOLE [None]
  - RETINAL DETACHMENT [None]
  - RETINAL HAEMORRHAGE [None]
